FAERS Safety Report 8373431-5 (Version None)
Quarter: 2012Q2

REPORT INFORMATION
  Report Type: 
  Country: None (occurrence: None)
  Receive Date: 20120521
  Receipt Date: 20120104
  Transmission Date: 20120825
  Serious: Yes (Hospitalization)
  Sender: FDA-Public Use
  Company Number: US-TEVA-2011005899

PATIENT
  Sex: Male
  Weight: 70.824 kg

DRUGS (7)
  1. CARVEDILOL [Concomitant]
  2. TREANDA [Suspect]
     Indication: CHRONIC LYMPHOCYTIC LEUKAEMIA
     Route: 042
     Dates: start: 20111001
  3. ONDANSETRON [Concomitant]
     Dates: start: 20111001
  4. ACETAMINOPHEN [Concomitant]
     Route: 048
  5. RITUXIMAB [Concomitant]
     Indication: CHRONIC LYMPHOCYTIC LEUKAEMIA
  6. DIPHENHYDRAMINE HYDROCHLORIDE [Concomitant]
  7. SIMVASTATIN [Concomitant]

REACTIONS (1)
  - SEPTIC SHOCK [None]
